FAERS Safety Report 5140537-3 (Version None)
Quarter: 2006Q4

REPORT INFORMATION
  Report Type: 
  Country: None (occurrence: None)
  Receive Date: 20061025
  Receipt Date: 20061011
  Transmission Date: 20070319
  Serious: Yes (Death)
  Sender: FDA-Public Use
  Company Number: 008841

PATIENT
  Age: 9 Year
  Sex: 0

DRUGS (4)
  1. CLARAVIS [Suspect]
     Indication: NEUROBLASTOMA
     Dosage: 80 MG, QD, ORAL; 60 MG, QD, ORAL
     Route: 048
     Dates: start: 20060123, end: 20060101
  2. CLARAVIS [Suspect]
     Indication: NEUROBLASTOMA
     Dosage: 80 MG, QD, ORAL; 60 MG, QD, ORAL
     Route: 048
     Dates: start: 20060123, end: 20060101
  3. ETOPOSIDE [Concomitant]
  4. OXYCODONE HCL [Concomitant]

REACTIONS (2)
  - MALIGNANT NEOPLASM PROGRESSION [None]
  - NEUROBLASTOMA [None]
